FAERS Safety Report 7594684-7 (Version None)
Quarter: 2011Q3

REPORT INFORMATION
  Report Type: 
  Country: None (occurrence: None)
  Receive Date: 20110707
  Receipt Date: 20110623
  Transmission Date: 20111222
  Serious: Yes (Other)
  Sender: FDA-Public Use
  Company Number: JP-JNJFOC-20110611979

PATIENT
  Sex: Male

DRUGS (3)
  1. ASACOL [Suspect]
     Indication: PRODUCT USED FOR UNKNOWN INDICATION
     Route: 048
  2. REMICADE [Suspect]
     Route: 042
     Dates: start: 20110621
  3. REMICADE [Suspect]
     Indication: COLITIS ULCERATIVE
     Route: 042
     Dates: start: 20110607

REACTIONS (3)
  - NASOPHARYNGITIS [None]
  - MEDICATION RESIDUE [None]
  - PYREXIA [None]
